FAERS Safety Report 5854257-0 (Version None)
Quarter: 2008Q3

REPORT INFORMATION
  Report Type: 
  Country: None (occurrence: None)
  Receive Date: 20080822
  Receipt Date: 20080820
  Transmission Date: 20090109
  Serious: Yes (Other)
  Sender: FDA-Public Use
  Company Number: PHEH2008US07311

PATIENT
  Sex: Male

DRUGS (1)
  1. GLEEVEC [Suspect]

REACTIONS (2)
  - POST PROCEDURAL COMPLICATION [None]
  - SURGERY [None]
